FAERS Safety Report 4292310-6 (Version None)
Quarter: 2004Q1

REPORT INFORMATION
  Report Type: 
  Country: None (occurrence: None)
  Receive Date: 20040211
  Receipt Date: 20040204
  Transmission Date: 20041129
  Serious: Yes (Other)
  Sender: FDA-Public Use
  Company Number: US-ROCHE-358062

PATIENT
  Age: 51 Year
  Sex: Male

DRUGS (5)
  1. DACLIZUMAB [Suspect]
     Route: 042
     Dates: start: 20040112, end: 20040112
  2. DACLIZUMAB [Suspect]
     Route: 042
     Dates: start: 20040114, end: 20040114
  3. DACLIZUMAB [Suspect]
     Route: 042
     Dates: start: 20040121, end: 20040121
  4. MYCOPHENOLATE MOFETIL [Suspect]
     Route: 065
  5. PROGRAF [Suspect]
     Route: 065

REACTIONS (8)
  - CHEST PAIN [None]
  - CONFUSIONAL STATE [None]
  - DELUSION [None]
  - DYSPNOEA [None]
  - PARANOIA [None]
  - TREMOR [None]
  - VISION BLURRED [None]
  - VISUAL DISTURBANCE [None]
